FAERS Safety Report 24595692 (Version 1)
Quarter: 2024Q4

REPORT INFORMATION
  Report Type: Spontaneous
  Country: US (occurrence: US)
  Receive Date: 20241109
  Receipt Date: 20241109
  Transmission Date: 20250115
  Serious: Yes (Other)
  Sender: ABBVIE
  Company Number: US-ABBVIE-5991650

PATIENT
  Sex: Female

DRUGS (2)
  1. REFRESH CELLUVISC [Suspect]
     Active Substance: CARBOXYMETHYLCELLULOSE SODIUM
     Indication: Dry eye
     Dosage: PRESERVATIVE FREE
     Route: 047
  2. DREAM [Suspect]
     Active Substance: SODIUM FLUORIDE
     Indication: Product used for unknown indication
     Route: 065

REACTIONS (6)
  - Cataract [Unknown]
  - Product temperature excursion issue [Unknown]
  - Dry eye [Unknown]
  - Vision blurred [Unknown]
  - Poor quality product administered [Unknown]
  - Therapeutic product effect incomplete [Unknown]
